FAERS Safety Report 7967696-9 (Version None)
Quarter: 2011Q4

REPORT INFORMATION
  Report Type: 
  Country: None (occurrence: None)
  Receive Date: 20111209
  Receipt Date: 20111206
  Transmission Date: 20120403
  Serious: Yes (Other)
  Sender: FDA-Public Use
  Company Number: US-PFIZER INC-2011298432

PATIENT
  Sex: Male
  Weight: 68.027 kg

DRUGS (6)
  1. VITAMIN TAB [Concomitant]
     Dosage: UNK
  2. FISH OIL [Concomitant]
     Indication: CARDIAC DISORDER
  3. ADVIL PM [Suspect]
     Indication: MYALGIA
     Dosage: 200 MG, AS NEEDED
     Dates: start: 20111101, end: 20111101
  4. ADVIL PM [Suspect]
     Indication: INSOMNIA
  5. FISH OIL [Concomitant]
     Indication: SUPPLEMENTATION THERAPY
     Dosage: UNK
  6. FISH OIL [Concomitant]
     Indication: ARTHROPATHY

REACTIONS (1)
  - CONVULSION [None]
